FAERS Safety Report 25170845 (Version 1)
Quarter: 2025Q2

REPORT INFORMATION
  Report Type: Spontaneous
  Country: JP (occurrence: JP)
  Receive Date: 20250408
  Receipt Date: 20250408
  Transmission Date: 20250717
  Serious: Yes (Life-Threatening, Hospitalization)
  Sender: CHEPLAPHARM
  Company Number: None

PATIENT
  Age: 22 Year
  Sex: Female
  Weight: 52 kg

DRUGS (8)
  1. OLANZAPINE [Suspect]
     Active Substance: OLANZAPINE
     Indication: Bipolar disorder
     Route: 048
  2. LAMOTRIGINE [Suspect]
     Active Substance: LAMOTRIGINE
     Indication: Bipolar disorder
     Route: 048
  3. RISPERIDONE [Suspect]
     Active Substance: RISPERIDONE
     Indication: Bipolar disorder
     Route: 048
  4. ACETAMINOPHEN [Suspect]
     Active Substance: ACETAMINOPHEN
     Route: 048
  5. ALCOHOL [Suspect]
     Active Substance: ALCOHOL
  6. LORAZEPAM [Concomitant]
     Active Substance: LORAZEPAM
     Indication: Bipolar disorder
  7. BROTIZOLAM [Concomitant]
     Active Substance: BROTIZOLAM
     Indication: Bipolar disorder
  8. FLUNITRAZEPAM [Concomitant]
     Active Substance: FLUNITRAZEPAM
     Indication: Bipolar disorder

REACTIONS (5)
  - Coma [Recovered/Resolved]
  - Suicide attempt [Recovered/Resolved]
  - Overdose [Recovered/Resolved]
  - Hepatic function abnormal [Recovered/Resolved]
  - Urticaria [Recovered/Resolved]
